FAERS Safety Report 11502888 (Version 2)
Quarter: 2016Q3

REPORT INFORMATION
  Report Type: Spontaneous
  Country: US (occurrence: US)
  Receive Date: 20150914
  Receipt Date: 20160915
  Transmission Date: 20161109
  Serious: Yes (Other)
  Sender: FDA-Public Use
  Company Number: US-ASTELLAS-2015US029036

PATIENT
  Sex: Male

DRUGS (3)
  1. VITAMINS [Concomitant]
     Active Substance: VITAMINS
     Indication: PRODUCT USED FOR UNKNOWN INDICATION
     Dosage: UNK UNK, UNKNOWN FREQ.
     Route: 065
  2. XTANDI [Suspect]
     Active Substance: ENZALUTAMIDE
     Indication: PROSTATE CANCER
     Dosage: 160 MG (40 MG X 4), ONCE DAILY BY MOUTH
     Route: 048
     Dates: start: 20150718
  3. ZOCOR [Concomitant]
     Active Substance: SIMVASTATIN
     Indication: PRODUCT USED FOR UNKNOWN INDICATION
     Dosage: UNK UNK, UNKNOWN FREQ.
     Route: 065

REACTIONS (10)
  - Nasopharyngitis [Unknown]
  - Insomnia [Unknown]
  - Spinal cord compression [Unknown]
  - Asthenia [Unknown]
  - Oropharyngeal pain [Unknown]
  - Sneezing [Unknown]
  - Epistaxis [Unknown]
  - Fatigue [Unknown]
  - Nasal congestion [Unknown]
  - Tooth extraction [Unknown]
